FAERS Safety Report 18318492 (Version 1)
Quarter: 2020Q3

REPORT INFORMATION
  Report Type: Spontaneous
  Country: US (occurrence: US)
  Receive Date: 20200926
  Receipt Date: 20200926
  Transmission Date: 20201103
  Serious: No
  Sender: FDA-Public Use
  Company Number: None

PATIENT
  Age: 60 Year
  Sex: Female
  Weight: 56.25 kg

DRUGS (2)
  1. NP THYROID [Suspect]
     Active Substance: LEVOTHYROXINE\LIOTHYRONINE
     Indication: HYPOTHYROIDISM
     Dosage: ?          QUANTITY:1 TABLET(S);?
     Route: 048
     Dates: start: 20171001, end: 20200915
  2. VITAMIN D SUPPLEMENT [Concomitant]
     Active Substance: VITAMIN D NOS

REACTIONS (5)
  - Hypothyroidism [None]
  - Drug ineffective [None]
  - Weight increased [None]
  - Poor peripheral circulation [None]
  - Blood parathyroid hormone abnormal [None]

NARRATIVE: CASE EVENT DATE: 20200129
